FAERS Safety Report 17788172 (Version 3)
Quarter: 2020Q4

REPORT INFORMATION
  Report Type: Report from Study
  Country: CR (occurrence: CR)
  Receive Date: 20200514
  Receipt Date: 20201027
  Transmission Date: 20210113
  Serious: Yes (Other)
  Sender: FDA-Public Use
  Company Number: NVSC2020CR130740

PATIENT
  Sex: Female

DRUGS (2)
  1. HUMIRA [Concomitant]
     Active Substance: ADALIMUMAB
     Indication: PRODUCT USED FOR UNKNOWN INDICATION
     Dosage: UNK
     Route: 065
  2. SCAPHO [Suspect]
     Active Substance: SECUKINUMAB
     Indication: ANKYLOSING SPONDYLITIS
     Dosage: 150 MG, QMO, (BENEATH THE SKIN, USUALLY VIA INJECTION)
     Route: 058
     Dates: start: 20191022, end: 20200920

REACTIONS (20)
  - Arthralgia [Recovering/Resolving]
  - Malaise [Recovering/Resolving]
  - Drug ineffective [Recovering/Resolving]
  - Thermal burns of eye [Recovering/Resolving]
  - Pain of skin [Recovering/Resolving]
  - Swelling [Recovering/Resolving]
  - Oral herpes [Recovering/Resolving]
  - Skin exfoliation [Recovering/Resolving]
  - Dry eye [Recovering/Resolving]
  - Tongue disorder [Not Recovered/Not Resolved]
  - Onychomycosis [Recovering/Resolving]
  - Eye swelling [Recovering/Resolving]
  - Asthenopia [Unknown]
  - Skin haemorrhage [Recovering/Resolving]
  - Discomfort [Recovering/Resolving]
  - Vision blurred [Recovering/Resolving]
  - Psoriasis [Not Recovered/Not Resolved]
  - Visual impairment [Recovering/Resolving]
  - Pain in extremity [Recovering/Resolving]
  - Stress [Recovering/Resolving]

NARRATIVE: CASE EVENT DATE: 202004
